FAERS Safety Report 15202368 (Version 1)
Quarter: 2018Q3

REPORT INFORMATION
  Report Type: Other
  Country: None (occurrence: US)
  Receive Date: 20180726
  Receipt Date: 20180726
  Transmission Date: 20181010
  Serious: Yes (Death, Life-Threatening, Hospitalization, Other)
  Sender: FDA-Public Use
  Company Number: US-C B FLEET CO INC-201807-US-001539

PATIENT
  Age: 19 Year
  Sex: Female

DRUGS (1)
  1. DIPHENHYDRAMINE HCL [Suspect]
     Active Substance: DIPHENHYDRAMINE HYDROCHLORIDE
     Indication: SUICIDE ATTEMPT
     Dosage: 3000MG
     Route: 048

REACTIONS (4)
  - Foetal death [Fatal]
  - Intentional overdose [None]
  - Suicide attempt [Unknown]
  - Maternal exposure during pregnancy [Unknown]
